FAERS Safety Report 23788247 (Version 1)
Quarter: 2024Q2

REPORT INFORMATION
  Report Type: Spontaneous
  Country: BY (occurrence: None)
  Receive Date: 20240426
  Receipt Date: 20240426
  Transmission Date: 20240716
  Serious: Yes (Other)
  Sender: FDA-Public Use
  Company Number: BY-ROCHE-3550522

PATIENT
  Age: 55 Year
  Sex: Male

DRUGS (1)
  1. TECENTRIQ [Suspect]
     Active Substance: ATEZOLIZUMAB
     Indication: Product used for unknown indication
     Dosage: 8 COURSES OF ATEZOLIZUMAB. MONOTHERAPY WITH ATEZOLIZUMAB WAS RESUMED AT 10.23 A.M. 12 COURSES WERE C
     Route: 065
     Dates: start: 20230109, end: 20231031

REACTIONS (3)
  - Hepatotoxicity [Recovering/Resolving]
  - Metastases to lung [Unknown]
  - Metastases to central nervous system [Unknown]

NARRATIVE: CASE EVENT DATE: 20230831
